FAERS Safety Report 4579740-X (Version None)
Quarter: 2005Q1

REPORT INFORMATION
  Report Type: 
  Country: None (occurrence: None)
  Receive Date: 20050210
  Receipt Date: 20050201
  Transmission Date: 20050727
  Serious: No
  Sender: FDA-Public Use
  Company Number: 2005AP00692

PATIENT
  Age: 17 Year
  Sex: Female

DRUGS (2)
  1. MEROPENEM [Suspect]
  2. ANTIBIOTICS [Concomitant]

REACTIONS (1)
  - SEPTIC SHOCK [None]
